FAERS Safety Report 9273633 (Version 2)
Quarter: 2013Q3

REPORT INFORMATION
  Report Type: Spontaneous
  Country: US (occurrence: US)
  Receive Date: 20130506
  Receipt Date: 20130807
  Transmission Date: 20140515
  Serious: No
  Sender: FDA-Public Use
  Company Number: US-009507513-1305USA000943

PATIENT
  Age: 19 Year
  Sex: Female
  Weight: 75.37 kg

DRUGS (2)
  1. NEXPLANON [Suspect]
     Dosage: 1 ROD, UNK
     Dates: start: 20130501, end: 20130501
  2. NEXPLANON [Suspect]
     Dosage: 1 ROD, UNK
     Dates: start: 20130501

REACTIONS (3)
  - Device difficult to use [Recovered/Resolved]
  - Product quality issue [Unknown]
  - No adverse event [Unknown]
